FAERS Safety Report 10726404 (Version 3)
Quarter: 2015Q2

REPORT INFORMATION
  Report Type: Spontaneous
  Country: US (occurrence: US)
  Receive Date: 20150121
  Receipt Date: 20150414
  Transmission Date: 20150821
  Serious: No
  Sender: FDA-Public Use
  Company Number: US-PFIZER INC-2015021575

PATIENT
  Age: 54 Year
  Sex: Female
  Weight: 65.76 kg

DRUGS (4)
  1. LYRICA [Suspect]
     Active Substance: PREGABALIN
     Indication: NEURALGIA
  2. TRAMADOL [Concomitant]
     Active Substance: TRAMADOL
     Dosage: 2500 MG, DAILY (5 TABLETS A DAY)
  3. BELLADONNA EXTRACT/OPIUM [Concomitant]
     Dosage: UNK
  4. LYRICA [Suspect]
     Active Substance: PREGABALIN
     Indication: PELVIC FLOOR MUSCLE WEAKNESS
     Dosage: 50 MG, 3X/DAY

REACTIONS (1)
  - Drug ineffective for unapproved indication [Unknown]
